FAERS Safety Report 23452587 (Version 2)
Quarter: 2024Q3

REPORT INFORMATION
  Report Type: Spontaneous
  Country: US (occurrence: US)
  Receive Date: 20240129
  Receipt Date: 20240730
  Transmission Date: 20241016
  Serious: No
  Sender: SAREPTA THERAPEUTICS
  Company Number: US-SAREPTA THERAPEUTICS INC.-SRP2023-004065

PATIENT
  Age: 4 Year
  Sex: Male
  Weight: 16.3 kg

DRUGS (2)
  1. AMONDYS 45 [Suspect]
     Active Substance: CASIMERSEN
     Indication: Duchenne muscular dystrophy
     Dosage: 500 MILLIGRAM, WEEKELY
     Route: 042
     Dates: start: 20230720, end: 20231115
  2. AMONDYS 45 [Suspect]
     Active Substance: CASIMERSEN
     Dosage: 500 MILLIGRAM, WEEKELY
     Route: 042
     Dates: start: 20231128

REACTIONS (2)
  - Product dose omission issue [Unknown]
  - No adverse event [Unknown]

NARRATIVE: CASE EVENT DATE: 20231120
